FAERS Safety Report 5952480-8 (Version None)
Quarter: 2008Q4

REPORT INFORMATION
  Report Type: 
  Country: None (occurrence: None)
  Receive Date: 20081113
  Receipt Date: 20081104
  Transmission Date: 20090506
  Serious: Yes (Other)
  Sender: FDA-Public Use
  Company Number: US-PFIZER INC-2008081673

PATIENT
  Sex: Female
  Weight: 65.8 kg

DRUGS (4)
  1. CHANTIX [Suspect]
     Indication: SMOKING CESSATION THERAPY
     Route: 048
     Dates: start: 20070911
  2. ANTIHYPERTENSIVES [Concomitant]
  3. DRUG, UNSPECIFIED [Concomitant]
  4. SYNTHROID [Concomitant]
     Dosage: DAILY DOSE:100MCG

REACTIONS (7)
  - ABNORMAL DREAMS [None]
  - DEPRESSION [None]
  - FEAR [None]
  - IRRITABILITY [None]
  - PARANOIA [None]
  - PERSONALITY CHANGE [None]
  - SLEEP DISORDER [None]
